FAERS Safety Report 16349725 (Version 7)
Quarter: 2020Q2

REPORT INFORMATION
  Report Type: Spontaneous
  Country: BR (occurrence: BR)
  Receive Date: 20190523
  Receipt Date: 20200625
  Transmission Date: 20200713
  Serious: Yes (Hospitalization, Other)
  Sender: FDA-Public Use
  Company Number: BR-GLAXOSMITHKLINE-BR2019GSK036766

PATIENT
  Age: 72 Year
  Sex: Male
  Weight: 114 kg

DRUGS (1)
  1. NUCALA [Suspect]
     Active Substance: MEPOLIZUMAB
     Indication: ASTHMA
     Dosage: 100 MG, UNK
     Dates: start: 20181126

REACTIONS (10)
  - Cough [Unknown]
  - Blood pressure increased [Unknown]
  - Product dose omission [Unknown]
  - Asthmatic crisis [Unknown]
  - Asthma [Unknown]
  - Dyspnoea [Not Recovered/Not Resolved]
  - Apnoea [Unknown]
  - Fatigue [Not Recovered/Not Resolved]
  - Pre-existing condition improved [Unknown]
  - Dyspnoea exertional [Unknown]

NARRATIVE: CASE EVENT DATE: 20181230
